FAERS Safety Report 13008068 (Version 5)
Quarter: 2023Q2

REPORT INFORMATION
  Report Type: Report from Study
  Country: US (occurrence: None)
  Receive Date: 20161208
  Receipt Date: 20230420
  Transmission Date: 20230721
  Serious: Yes (Hospitalization)
  Sender: FDA-Public Use
  Company Number: US-ROCHE-1863807

PATIENT
  Age: 11 Year
  Sex: Female

DRUGS (1)
  1. VEMURAFENIB [Suspect]
     Active Substance: VEMURAFENIB
     Indication: Brain neoplasm malignant
     Route: 065

REACTIONS (2)
  - Pneumonia [Recovered/Resolved]
  - Skin infection [Recovered/Resolved]

NARRATIVE: CASE EVENT DATE: 20161115
